FAERS Safety Report 6261556-X (Version None)
Quarter: 2009Q3

REPORT INFORMATION
  Report Type: 
  Country: None (occurrence: None)
  Receive Date: 20090709
  Receipt Date: 20090629
  Transmission Date: 20100115
  Serious: Yes (Other)
  Sender: FDA-Public Use
  Company Number: PHHY2009BR26850

PATIENT
  Age: 93 Year
  Sex: Male

DRUGS (1)
  1. RASILEZ [Suspect]
     Dosage: 300 MG, UNK

REACTIONS (4)
  - BLOOD CREATININE INCREASED [None]
  - BLOOD UREA INCREASED [None]
  - RENAL FUNCTION TEST ABNORMAL [None]
  - RENAL IMPAIRMENT [None]
